FAERS Safety Report 25211854 (Version 1)
Quarter: 2025Q2

REPORT INFORMATION
  Report Type: Spontaneous
  Country: US (occurrence: US)
  Receive Date: 20250418
  Receipt Date: 20250418
  Transmission Date: 20250716
  Serious: Yes (Hospitalization, Other)
  Sender: ENDO
  Company Number: US-ENDO USA, INC.-2025-001055

PATIENT
  Age: 38 Year
  Sex: Female

DRUGS (2)
  1. KETALAR [Suspect]
     Active Substance: KETAMINE HYDROCHLORIDE
     Indication: Neuropathy peripheral
     Route: 061
     Dates: end: 202209
  2. LIDOCAINE [Suspect]
     Active Substance: LIDOCAINE
     Indication: Neuropathy peripheral
     Route: 061
     Dates: end: 202209

REACTIONS (4)
  - Cholangitis sclerosing [Not Recovered/Not Resolved]
  - Inflammatory bowel disease [Unknown]
  - Intentional product misuse [Recovered/Resolved]
  - Off label use [Recovered/Resolved]

NARRATIVE: CASE EVENT DATE: 20220101
